FAERS Safety Report 4512948-8 (Version None)
Quarter: 2004Q4

REPORT INFORMATION
  Report Type: 
  Country: None (occurrence: None)
  Receive Date: 20041124
  Receipt Date: 20041112
  Transmission Date: 20050328
  Serious: Yes (Hospitalization)
  Sender: FDA-Public Use
  Company Number: 2004IM000944

PATIENT
  Age: 62 Year
  Sex: Female
  Weight: 74.8435 kg

DRUGS (15)
  1. INTERFERON GAMMA-1B [Suspect]
     Indication: PULMONARY FIBROSIS
     Dosage: 200 UG;TIW;SUBCUTANEOUS
     Route: 058
  2. PREDNISONE [Concomitant]
  3. INDAPAMIDE [Concomitant]
  4. LIPITOR [Concomitant]
  5. SYNTHROID [Concomitant]
  6. OMEPRAZOLE [Concomitant]
  7. PREMPRO [Concomitant]
  8. ALLEGRA [Concomitant]
  9. ZETIA [Concomitant]
  10. MULTIVIT [Concomitant]
  11. CALCIUM WITH VITAMIN D [Concomitant]
  12. GLUCOSAMINE W/CHONDROITIN SULFATES [Concomitant]
  13. FISH OIL [Concomitant]
  14. VICODIN [Concomitant]
  15. CEPHALEXIN [Concomitant]

REACTIONS (3)
  - IMPAIRED HEALING [None]
  - MUSCLE GRAFT [None]
  - POSTOPERATIVE INFECTION [None]
